FAERS Safety Report 5474659-4 (Version None)
Quarter: 2007Q3

REPORT INFORMATION
  Report Type: 
  Country: None (occurrence: None)
  Receive Date: 20070928
  Receipt Date: 20070920
  Transmission Date: 20080115
  Serious: Yes (Hospitalization)
  Sender: FDA-Public Use
  Company Number: 2007SP019110

PATIENT
  Age: 57 Year
  Sex: Male

DRUGS (5)
  1. PEG-INTRON [Suspect]
     Indication: HEPATITIS C
     Dosage: ;SC : ;SC
     Route: 058
     Dates: start: 20051201, end: 20061201
  2. PEG-INTRON [Suspect]
     Indication: HEPATITIS C
     Dosage: ;SC : ;SC
     Route: 058
     Dates: end: 20070619
  3. REBETOL [Suspect]
     Indication: HEPATITIS C
     Dosage: ;PO : ;PO
     Route: 048
     Dates: start: 20051201, end: 20061201
  4. REBETOL [Suspect]
     Indication: HEPATITIS C
     Dosage: ;PO : ;PO
     Route: 048
     Dates: end: 20070619
  5. PEGASYS [Concomitant]

REACTIONS (4)
  - HEPATIC NEOPLASM MALIGNANT RECURRENT [None]
  - NO THERAPEUTIC RESPONSE [None]
  - ORAL CANDIDIASIS [None]
  - ORAL LICHEN PLANUS [None]
